FAERS Safety Report 9571161 (Version 2)
Quarter: 2013Q4

REPORT INFORMATION
  Report Type: Spontaneous
  Country: NL (occurrence: NL)
  Receive Date: 20131001
  Receipt Date: 20131016
  Transmission Date: 20140711
  Serious: Yes (Other)
  Sender: FDA-Public Use
  Company Number: PHHY2013NL108274

PATIENT
  Sex: Male

DRUGS (19)
  1. TOBI [Suspect]
     Dosage: UNK
  2. XYZAL [Concomitant]
     Dosage: UNK, 1 DD 5
  3. MONTELUKAST [Concomitant]
     Dosage: UNK 1 DD 10
  4. PREDNISOLONE [Concomitant]
     Dosage: UNK 1 DD 10
  5. THEOLAIR [Concomitant]
     Dosage: UNK 3 DD 250
  6. NASONEX [Concomitant]
     Dosage: UNK
  7. ALDACTONE [Concomitant]
     Dosage: UNK 1 DD 50
  8. ALVESCO [Concomitant]
     Dosage: 160 UNK, 1 DD 1
  9. FUROSEMIDE [Concomitant]
     Dosage: UNK, 1 DD 80
  10. SERETIDE [Concomitant]
     Dosage: UNK 2 DD 2
  11. FLUIMICIL [Concomitant]
     Dosage: UNK 1 DD 600
  12. FLUIMICIL [Concomitant]
     Dosage: UNK 4 DD
  13. SPIRIVA [Concomitant]
     Dosage: 2.5 UKN  DD 2
  14. PANTOZOL [Concomitant]
     Dosage: UNK 1 DD 40
  15. COMBIVENT [Concomitant]
     Dosage: UNK 4 DD
  16. AZITHROMYCIN [Concomitant]
     Dosage: UNK 1 DD 50
  17. MORPHINE [Concomitant]
     Indication: SURGERY
     Dosage: UNK
  18. ORAMORPH [Concomitant]
     Dosage: UNK 6 DD 5
  19. SEEBRI [Concomitant]
     Dosage: 44 UKN, 1 DD 1
     Dates: start: 201305

REACTIONS (3)
  - Depression [Unknown]
  - Aggression [Unknown]
  - Anger [Unknown]
